FAERS Safety Report 21574562 (Version 7)
Quarter: 2022Q4

REPORT INFORMATION
  Report Type: Report from Study
  Country: CH (occurrence: CH)
  Receive Date: 20221109
  Receipt Date: 20221201
  Transmission Date: 20230113
  Serious: Yes (Hospitalization)
  Sender: FDA-Public Use
  Company Number: CH-AMGEN-CHECT2022191143

PATIENT
  Age: 68 Year
  Sex: Female
  Weight: 107 kg

DRUGS (43)
  1. SOTORASIB [Suspect]
     Active Substance: SOTORASIB
     Indication: Non-small cell lung cancer stage IV
     Dosage: 480 MILLIGRAM
     Route: 048
     Dates: start: 20191203
  2. SOTORASIB [Suspect]
     Active Substance: SOTORASIB
     Indication: K-ras gene mutation
  3. CALCIUM\CHOLECALCIFEROL [Concomitant]
     Active Substance: CALCIUM\CHOLECALCIFEROL
     Dosage: 1000 MILLIGRAM
     Route: 048
     Dates: start: 2016, end: 20221127
  4. ASPIRIN [Concomitant]
     Active Substance: ASPIRIN
     Dosage: 100 MILLIGRAM
     Route: 048
     Dates: start: 2016, end: 20221127
  5. BIOTIN [Concomitant]
     Active Substance: BIOTIN
     Dosage: 10 MILLIGRAM
     Route: 048
     Dates: start: 201901, end: 20221127
  6. OXYGEN [Concomitant]
     Active Substance: OXYGEN
     Dosage: 1.5 UNK
     Route: 045
     Dates: start: 2017, end: 20221127
  7. OLODATEROL HYDROCHLORIDE\TIOTROPIUM BROMIDE MONOHYDRATE [Concomitant]
     Active Substance: OLODATEROL HYDROCHLORIDE\TIOTROPIUM BROMIDE MONOHYDRATE
     Dosage: 5 MICROGRAM
     Route: 050
     Dates: start: 201901, end: 20221127
  8. PRIMPERAN [Concomitant]
     Active Substance: METOCLOPRAMIDE HYDROCHLORIDE
     Dosage: 10 MILLIGRAM
     Route: 048
     Dates: start: 2017, end: 20221127
  9. DAFALGAN [Concomitant]
     Active Substance: ACETAMINOPHEN
     Dosage: 500 MILLIGRAM
     Route: 048
     Dates: start: 2017, end: 20221127
  10. D-MANNOSE [Concomitant]
     Dosage: 2 GRAM
     Route: 048
     Dates: start: 20200105, end: 20221127
  11. CARBOMER [Concomitant]
     Active Substance: CARBOMER
     Dosage: 1 GTT DROPS
     Route: 047
     Dates: start: 201912, end: 20221127
  12. DEXAMETHASONE [Concomitant]
     Active Substance: DEXAMETHASONE
     Dosage: 1 GTT DROPS
     Route: 047
     Dates: start: 20200226, end: 20221127
  13. Bepanthen [Concomitant]
     Dosage: 1 UNK/1 UNK (TOPICAL)
     Route: 047
     Dates: start: 20200203, end: 20221127
  14. LANTUS [Concomitant]
     Active Substance: INSULIN GLARGINE
     Dosage: 38 UNK
     Route: 058
     Dates: start: 2000, end: 20221127
  15. BISOPROLOL [Concomitant]
     Active Substance: BISOPROLOL
     Dosage: 2.5 MILLIGRAM
     Route: 048
     Dates: start: 20200604, end: 20221127
  16. HYALURONATE SODIUM [Concomitant]
     Active Substance: HYALURONATE SODIUM
     Dosage: 1 GTT DROPS
     Route: 047
     Dates: start: 20200923, end: 20221127
  17. TOBRADEX [Concomitant]
     Active Substance: DEXAMETHASONE\TOBRAMYCIN
     Dosage: 1 UNK
     Route: 047
     Dates: start: 20210105, end: 20221127
  18. NOVORAPID [Concomitant]
     Active Substance: INSULIN ASPART
     Dosage: 100 UNK
     Route: 058
     Dates: start: 2000, end: 20221127
  19. RETINOL [Concomitant]
     Active Substance: RETINOL
     Dosage: 1 UNK
     Route: 047
     Dates: start: 20210105, end: 20221127
  20. IALUGEN PLUS [Concomitant]
     Dosage: 1 UNK
     Route: 061
     Dates: start: 20210914, end: 20221127
  21. JANUVIA [Concomitant]
     Active Substance: SITAGLIPTIN PHOSPHATE
     Dosage: 25 MILLIGRAM
     Route: 048
     Dates: start: 20220922, end: 20221127
  22. PANTOPRAZOLE SODIUM [Concomitant]
     Active Substance: PANTOPRAZOLE SODIUM
     Dosage: 40 MILLIGRAM
     Route: 048
     Dates: start: 2016, end: 20221127
  23. ACETYLCYSTEINE [Concomitant]
     Active Substance: ACETYLCYSTEINE
     Dosage: 600 MILLIGRAM
     Route: 048
     Dates: start: 2017, end: 20221127
  24. ATROVENT [Concomitant]
     Active Substance: IPRATROPIUM BROMIDE
     Dosage: 0.25 UNK
     Route: 045
     Dates: start: 20220308, end: 20221127
  25. MORPHINE [Concomitant]
     Active Substance: MORPHINE
     Dosage: 20 UNK
     Route: 048
     Dates: start: 20220815, end: 20221127
  26. RESONIUM [Concomitant]
     Active Substance: SODIUM POLYSTYRENE SULFONATE
     Dosage: 15 GRAM
     Route: 048
     Dates: start: 20220906, end: 20221019
  27. LISINOPRIL [Concomitant]
     Active Substance: LISINOPRIL
     Dosage: 5 MILLIGRAM
     Route: 048
     Dates: start: 20220922, end: 20221127
  28. AMPHO-MORONAL [Concomitant]
     Active Substance: AMPHOTERICIN B
     Dosage: 10 MILLIGRAM
     Route: 048
     Dates: start: 20220921, end: 20221115
  29. METAMIZOLE [Concomitant]
     Active Substance: METAMIZOLE
     Dosage: 500 MILLIGRAM
     Route: 048
     Dates: start: 20220921, end: 20221127
  30. DOMPERIDONE [Concomitant]
     Active Substance: DOMPERIDONE
     Dosage: 10 MILLIGRAM
     Route: 060
     Dates: start: 20221004, end: 20221127
  31. MIDODRIN [Concomitant]
     Dosage: 2.33 MILLIGRAM
     Route: 048
     Dates: start: 20221018, end: 20221018
  32. PREDNISOLONE [Concomitant]
     Active Substance: PREDNISOLONE
     Dosage: 20 MILLIGRAM
     Route: 048
     Dates: start: 20221018, end: 20221018
  33. METHYLPREDNISOLONE [Concomitant]
     Active Substance: METHYLPREDNISOLONE
     Dosage: 125 MILLIGRAM
     Route: 042
     Dates: start: 20221018, end: 20221018
  34. LEVOFLOXACIN [Concomitant]
     Active Substance: LEVOFLOXACIN
     Dosage: 500 MILLIGRAM
     Route: 048
     Dates: start: 20221018, end: 20221018
  35. SALINE [Concomitant]
     Active Substance: SODIUM CHLORIDE
     Dosage: UNK
     Route: 042
     Dates: start: 20221019, end: 20221027
  36. PREDNISONE [Concomitant]
     Active Substance: PREDNISONE
     Dosage: 50 MILLIGRAM
     Route: 048
     Dates: start: 20221020, end: 20221108
  37. PREDNISONE [Concomitant]
     Active Substance: PREDNISONE
     Dosage: UNK
     Route: 048
     Dates: start: 20221020
  38. POLYETHYLENE GLYCOLS [Concomitant]
     Active Substance: POLYETHYLENE GLYCOLS
     Dosage: 1 UNK
     Route: 048
     Dates: start: 20221021, end: 20221127
  39. SODIUM PICOSULFATE [Concomitant]
     Active Substance: SODIUM PICOSULFATE
     Dosage: 5 MILLIGRAM
     Route: 048
     Dates: start: 20221022, end: 20221024
  40. TORSEMIDE [Concomitant]
     Active Substance: TORSEMIDE
     Dosage: 20 MILLIGRAM
     Route: 048
     Dates: start: 20221023, end: 20221127
  41. FRAGMIN [Concomitant]
     Active Substance: DALTEPARIN SODIUM
     Dosage: 5000 INTERNATIONAL UNIT
     Route: 058
     Dates: start: 20221018, end: 20221107
  42. CEFTRIAXONE [Concomitant]
     Active Substance: CEFTRIAXONE
     Dosage: 2 GRAM
     Route: 042
     Dates: start: 20221019, end: 20221107
  43. FUROSEMIDE [Concomitant]
     Active Substance: FUROSEMIDE
     Dosage: UNK
     Route: 042
     Dates: start: 20221023, end: 20221104

REACTIONS (1)
  - Respiratory syncytial virus infection [Recovered/Resolved]

NARRATIVE: CASE EVENT DATE: 20221103
